FAERS Safety Report 24845546 (Version 5)
Quarter: 2025Q3

REPORT INFORMATION
  Report Type: Spontaneous
  Country: EU (occurrence: EU)
  Receive Date: 20250115
  Receipt Date: 20250925
  Transmission Date: 20251020
  Serious: Yes (Hospitalization, Other)
  Sender: AMICUS THERAPEUTICS
  Company Number: EU-AMICUS THERAPEUTICS, INC.-AMI_3643

PATIENT
  Sex: Male

DRUGS (1)
  1. MIGALASTAT HYDROCHLORIDE [Suspect]
     Active Substance: MIGALASTAT HYDROCHLORIDE
     Indication: Fabry^s disease
     Dosage: 1 DOSAGE FORM, QOD
     Route: 048
     Dates: start: 201801

REACTIONS (10)
  - Loss of consciousness [Recovered/Resolved]
  - Arrhythmia [Recovering/Resolving]
  - Contusion [Recovering/Resolving]
  - Arrhythmia [Recovered/Resolved]
  - Cardiac failure [Recovered/Resolved]
  - Cerebrovascular accident [Recovered/Resolved]
  - Arrhythmia [Recovered/Resolved]
  - Ventricular tachycardia [Unknown]
  - Myocardial fibrosis [Unknown]
  - Drug ineffective [Unknown]

NARRATIVE: CASE EVENT DATE: 20201101
